FAERS Safety Report 4623076-5 (Version None)
Quarter: 2005Q1

REPORT INFORMATION
  Report Type: 
  Country: None (occurrence: None)
  Receive Date: 20050107
  Receipt Date: 20041010
  Transmission Date: 20050727
  Serious: No
  Sender: FDA-Public Use
  Company Number: 235122K04USA

PATIENT
  Sex: Female

DRUGS (1)
  1. REBIF [Suspect]
     Indication: MULTIPLE SCLEROSIS

REACTIONS (2)
  - INFLUENZA [None]
  - INFLUENZA LIKE ILLNESS [None]
